FAERS Safety Report 7331537-3 (Version None)
Quarter: 2011Q1

REPORT INFORMATION
  Report Type: 
  Country: None (occurrence: None)
  Receive Date: 20110304
  Receipt Date: 20110228
  Transmission Date: 20110831
  Serious: Yes (Other)
  Sender: FDA-Public Use
  Company Number: US-PFIZER INC-2011043249

PATIENT
  Sex: Female

DRUGS (2)
  1. REBIF [Suspect]
     Dosage: UNK
     Dates: start: 20100419
  2. LOPID [Suspect]
     Indication: BLOOD CHOLESTEROL ABNORMAL
     Dosage: UNK

REACTIONS (4)
  - BILIARY DILATATION [None]
  - PANCREATIC ENLARGEMENT [None]
  - HEPATOMEGALY [None]
  - LIVER FUNCTION TEST ABNORMAL [None]
